FAERS Safety Report 7922736-8 (Version None)
Quarter: 2011Q4

REPORT INFORMATION
  Report Type: 
  Country: None (occurrence: None)
  Receive Date: 20111117
  Receipt Date: 20110819
  Transmission Date: 20120403
  Serious: No
  Sender: FDA-Public Use
  Company Number: US-ALLERGAN-1111212US

PATIENT
  Age: 76 Year
  Sex: Female

DRUGS (2)
  1. XALATAN [Concomitant]
     Indication: GLAUCOMA
     Dosage: UNK
  2. COMBIGAN [Suspect]
     Indication: GLAUCOMA
     Dosage: UNK
     Route: 047
     Dates: start: 20090101, end: 20110326

REACTIONS (1)
  - BLOOD PRESSURE DECREASED [None]
